FAERS Safety Report 21373632 (Version 1)
Quarter: 2022Q3

REPORT INFORMATION
  Report Type: Spontaneous
  Country: FR (occurrence: FR)
  Receive Date: 20220925
  Receipt Date: 20220925
  Transmission Date: 20221026
  Serious: Yes (Hospitalization)
  Sender: FDA-Public Use
  Company Number: None

PATIENT
  Age: 80 Year
  Sex: Female
  Weight: 63 kg

DRUGS (18)
  1. LYRICA [Suspect]
     Active Substance: PREGABALIN
     Indication: Pain
     Dosage: 100 MG, 3X/DAY 1-1-1
     Route: 048
     Dates: start: 20210201
  2. ALPRAZOLAM [Suspect]
     Active Substance: ALPRAZOLAM
     Indication: Anxiety
     Dosage: 1/2 TAB 1-1 (IF NECESSARY)-1
     Route: 048
     Dates: start: 20220816, end: 20220901
  3. ZOPICLONE [Suspect]
     Active Substance: ZOPICLONE
     Indication: Insomnia
     Dosage: 0.5 TAB AT 9 P.M
     Route: 048
     Dates: start: 20210201, end: 20220901
  4. SKENAN [Suspect]
     Active Substance: MORPHINE SULFATE
     Indication: Pain
     Dosage: 10 MG, 2X/DAY (SUSTAINED-RELEASE MICROGRANULES IN CAPSULE FORM)
     Route: 048
     Dates: start: 20220401, end: 20220901
  5. FENTANYL [Suspect]
     Active Substance: FENTANYL
     Indication: Pain
     Dosage: 75 MICROGRAMS/HOUR (12.6 MG/31.5 CM2), ONE PATCH EVERY 3 DAYS
     Route: 062
     Dates: start: 20210201, end: 20220903
  6. FENTANYL [Suspect]
     Active Substance: FENTANYL
     Dosage: 75 MICROGRAMS/HOUR (12.6 MG/31.5 CM2), ONE PATCH EVERY 3 DAYS
     Route: 062
     Dates: start: 20220906, end: 20220909
  7. LEVOTHYROXINE [Concomitant]
     Active Substance: LEVOTHYROXINE
     Indication: Hypothyroidism
     Dosage: 125 UG, 1X/DAY
     Route: 048
     Dates: start: 20210201, end: 20220901
  8. LEVOTHYROXINE [Concomitant]
     Active Substance: LEVOTHYROXINE
     Dosage: 125 UG, 1X/DAY
     Route: 048
     Dates: start: 20220907
  9. VALACYCLOVIR HYDROCHLORIDE [Concomitant]
     Active Substance: VALACYCLOVIR HYDROCHLORIDE
     Indication: Antiviral prophylaxis
     Dosage: 500 MG, 2X/DAY, 1-0-1
     Route: 048
     Dates: start: 20210201
  10. SERTRALINE HYDROCHLORIDE [Concomitant]
     Active Substance: SERTRALINE HYDROCHLORIDE
     Indication: Depression
     Dosage: 50 MG, 1X/DAY IN THE EVENING
     Route: 048
     Dates: start: 20220816, end: 20220901
  11. XANAX [Concomitant]
     Active Substance: ALPRAZOLAM
     Dosage: 0.5 DF, 1X/DAY IN THE EVENING
  12. ACETAMINOPHEN [Concomitant]
     Active Substance: ACETAMINOPHEN
     Dosage: 1 IN CASE OF MAXIMUM PAIN 3/D
  13. CHOLECALCIFEROL [Concomitant]
     Active Substance: CHOLECALCIFEROL
     Dosage: 1 VIAL/MONTH
  14. FOLIC ACID [Concomitant]
     Active Substance: FOLIC ACID
     Dosage: 5 MG, DAILY
  15. PYRIDOXINE HYDROCHLORIDE\THIAMINE HYDROCHLORIDE [Concomitant]
     Active Substance: PYRIDOXINE HYDROCHLORIDE\THIAMINE HYDROCHLORIDE
     Dosage: 1 DF, 2X/DAY 1-0-1
  16. OMEPRAZOLE [Concomitant]
     Active Substance: OMEPRAZOLE
     Dosage: 1 DF
  17. KARDEGIC [Concomitant]
     Active Substance: ASPIRIN DL-LYSINE
     Dosage: 1 SACHET PER DAY
  18. BACTRIM [Concomitant]
     Active Substance: SULFAMETHOXAZOLE\TRIMETHOPRIM
     Dosage: 1 TAB 3X/WEEK

REACTIONS (3)
  - Depressed level of consciousness [Recovering/Resolving]
  - Confusional state [Recovering/Resolving]
  - Psychomotor retardation [Recovering/Resolving]

NARRATIVE: CASE EVENT DATE: 20220831
